FAERS Safety Report 17381524 (Version 1)
Quarter: 2020Q1

REPORT INFORMATION
  Report Type: Spontaneous
  Country: US (occurrence: US)
  Receive Date: 20200206
  Receipt Date: 20200206
  Transmission Date: 20200409
  Serious: No
  Sender: FDA-Public Use
  Company Number: US-ABBVIE-19K-163-2797495-00

PATIENT
  Sex: Male
  Weight: 3.63 kg

DRUGS (1)
  1. HUMIRA [Suspect]
     Active Substance: ADALIMUMAB
     Indication: MATERNAL EXPOSURE TIMING UNSPECIFIED
     Route: 064
     Dates: start: 2012, end: 2015

REACTIONS (2)
  - Foetal exposure during pregnancy [Unknown]
  - Skin hypertrophy [Not Recovered/Not Resolved]
